FAERS Safety Report 5867669-6 (Version None)
Quarter: 2008Q3

REPORT INFORMATION
  Report Type: 
  Country: None (occurrence: None)
  Receive Date: 20080902
  Receipt Date: 20080822
  Transmission Date: 20090109
  Serious: Yes (Death, Hospitalization)
  Sender: FDA-Public Use
  Company Number: DE-ROCHE-558826

PATIENT
  Sex: Female
  Weight: 44 kg

DRUGS (7)
  1. ERLOTINIB [Suspect]
     Indication: PANCREATIC CARCINOMA
     Dosage: REPORTED AS 150/100 MG DAILY LAST DOSE RECEIVED PRIOR TO SAE ON 7 APRIL 2008
     Route: 048
     Dates: start: 20071123
  2. GEMCITABINE [Suspect]
     Indication: PANCREATIC CARCINOMA
     Dosage: ON DAYS 1, 8 AND 15. LAST DOSE PRIOR TO SAE WAS RECEIVED ON 28 MARCH 2008
     Route: 065
     Dates: start: 20071123
  3. OXYCODONE HCL [Concomitant]
  4. METOCLOPRAMIDE [Concomitant]
  5. SPIRONOLACTONE [Concomitant]
  6. ENOXAPARIN SODIUM [Concomitant]
  7. OMEPRAZOLE [Concomitant]

REACTIONS (1)
  - DEATH [None]
